FAERS Safety Report 23456004 (Version 2)
Quarter: 2024Q1

REPORT INFORMATION
  Report Type: Spontaneous
  Country: US (occurrence: US)
  Receive Date: 20240130
  Receipt Date: 20240307
  Transmission Date: 20240410
  Serious: No
  Sender: FDA-Public Use
  Company Number: US-BIOGEN-2024BI01247275

PATIENT
  Sex: Female

DRUGS (1)
  1. VUMERITY [Suspect]
     Active Substance: DIROXIMEL FUMARATE
     Indication: Multiple sclerosis
     Route: 050
     Dates: start: 202311

REACTIONS (6)
  - Product dose omission issue [Unknown]
  - Flushing [Unknown]
  - Pruritus [Unknown]
  - Arthralgia [Unknown]
  - Temperature intolerance [Unknown]
  - Anxiety [Unknown]
